FAERS Safety Report 5420719-3 (Version None)
Quarter: 2007Q3

REPORT INFORMATION
  Report Type: 
  Country: None (occurrence: None)
  Receive Date: 20070816
  Receipt Date: 20070809
  Transmission Date: 20080115
  Serious: Yes (Other)
  Sender: FDA-Public Use
  Company Number: E2090-00255-CLI-DE

PATIENT
  Age: 38 Year
  Sex: Female
  Weight: 73 kg

DRUGS (5)
  1. ZONEGRAN [Suspect]
     Indication: EPILEPSY
     Dosage: 50 MG, 1 IN 1 D, ORAL, 100 MG, 1 IN 1 D, ORAL, 200  MG, 1 IN 1 D, ORAL
     Route: 048
     Dates: start: 20070522, end: 20070501
  2. ZONEGRAN [Suspect]
     Indication: EPILEPSY
     Dosage: 50 MG, 1 IN 1 D, ORAL, 100 MG, 1 IN 1 D, ORAL, 200  MG, 1 IN 1 D, ORAL
     Route: 048
     Dates: start: 20070501, end: 20070601
  3. ZONEGRAN [Suspect]
     Indication: EPILEPSY
     Dosage: 50 MG, 1 IN 1 D, ORAL, 100 MG, 1 IN 1 D, ORAL, 200  MG, 1 IN 1 D, ORAL
     Route: 048
     Dates: start: 20070601, end: 20070625
  4. KEPPRA [Concomitant]
  5. FRISIUM (CLOBAZAM) [Concomitant]

REACTIONS (6)
  - ABDOMINAL PAIN UPPER [None]
  - DIARRHOEA [None]
  - HAEMATOLOGY TEST ABNORMAL [None]
  - NEUTROPENIA [None]
  - RESTLESSNESS [None]
  - SLEEP DISORDER [None]
